FAERS Safety Report 24539281 (Version 1)
Quarter: 2024Q4

REPORT INFORMATION
  Report Type: Report from Study
  Country: ZA (occurrence: ZA)
  Receive Date: 20241023
  Receipt Date: 20241023
  Transmission Date: 20250115
  Serious: Yes (Other)
  Sender: MYLAN
  Company Number: ZA-MYLANLABS-2024M1095598

PATIENT
  Age: 34 Year
  Sex: Male

DRUGS (3)
  1. CLOZAPINE [Suspect]
     Active Substance: CLOZAPINE
     Indication: Seasonal affective disorder
     Dosage: UNK UNK, QD, DOSE: 175MG/300MG
     Route: 065
  2. EPILIM [Suspect]
     Active Substance: VALPROATE SODIUM
     Indication: Seasonal affective disorder
     Dosage: UNK; DOSE: 500MG/800MG
     Route: 065
  3. ZUCLOPENTHIXOL [Concomitant]
     Active Substance: ZUCLOPENTHIXOL
     Indication: Seasonal affective disorder
     Dosage: 400 MILLIGRAM, MONTHLY
     Route: 030

REACTIONS (5)
  - Neutropenia [Recovered/Resolved]
  - Weight increased [Unknown]
  - Constipation [Unknown]
  - Salivary hypersecretion [Unknown]
  - Dyslipidaemia [Unknown]
